FAERS Safety Report 6803484-4 (Version None)
Quarter: 2010Q2

REPORT INFORMATION
  Report Type: 
  Country: None (occurrence: None)
  Receive Date: 20100628
  Receipt Date: 20100621
  Transmission Date: 20101027
  Serious: Yes (Other)
  Sender: FDA-Public Use
  Company Number: US-JNJFOC-20100300001

PATIENT
  Sex: Male

DRUGS (2)
  1. LEVAQUIN [Suspect]
     Indication: SINUSITIS
     Route: 048
  2. CIPROFLOXACIN [Suspect]
     Indication: INFECTION
     Route: 048

REACTIONS (2)
  - ARTHRALGIA [None]
  - MENISCUS LESION [None]
